FAERS Safety Report 17242640 (Version 1)
Quarter: 2020Q1

REPORT INFORMATION
  Report Type: Spontaneous
  Country: US (occurrence: US)
  Receive Date: 20200107
  Receipt Date: 20200107
  Transmission Date: 20200409
  Serious: No
  Sender: FDA-Public Use
  Company Number: US-SA-2020SA003392

PATIENT
  Age: 17 Year
  Sex: Female

DRUGS (4)
  1. DUPIXENT [Suspect]
     Active Substance: DUPILUMAB
     Indication: ECZEMA
     Dosage: 200 MG, QOW
     Route: 058
     Dates: start: 20191014
  2. FLUOCINONIDE. [Concomitant]
     Active Substance: FLUOCINONIDE
  3. BETAMETHASONE. [Concomitant]
     Active Substance: BETAMETHASONE
  4. KETOCONAZOL [Concomitant]
     Active Substance: KETOCONAZOLE

REACTIONS (3)
  - Wrong technique in product usage process [Unknown]
  - Pain in extremity [Unknown]
  - Vomiting [Unknown]
